FAERS Safety Report 11920031 (Version 1)
Quarter: 2016Q1

REPORT INFORMATION
  Report Type: Spontaneous
  Country: DK (occurrence: DK)
  Receive Date: 20160115
  Receipt Date: 20160115
  Transmission Date: 20160526
  Serious: Yes (Hospitalization)
  Sender: FDA-Public Use
  Company Number: DK-PFIZER INC-2016009274

PATIENT
  Age: 49 Year
  Sex: Female

DRUGS (3)
  1. SELOZOK [Concomitant]
     Active Substance: METOPROLOL SUCCINATE
     Indication: HYPERTENSION
  2. ZARATOR [Suspect]
     Active Substance: ATORVASTATIN CALCIUM
     Indication: HYPERCHOLESTEROLAEMIA
     Dosage: 80 MG, 1X/DAY
     Route: 048
     Dates: end: 20151128
  3. HJERTEMAGNYL [Concomitant]
     Active Substance: ASPIRIN\MAGNESIUM OXIDE
     Indication: PROPHYLAXIS

REACTIONS (10)
  - Asthenia [Unknown]
  - Dizziness [Unknown]
  - Myalgia [Recovering/Resolving]
  - Aspartate aminotransferase increased [Unknown]
  - Diarrhoea [Unknown]
  - Blood potassium decreased [Unknown]
  - Malaise [Unknown]
  - Muscular weakness [Recovering/Resolving]
  - Alanine aminotransferase increased [Unknown]
  - Rhabdomyolysis [Recovered/Resolved]

NARRATIVE: CASE EVENT DATE: 201511
